FAERS Safety Report 18467418 (Version 1)
Quarter: 2020Q4

REPORT INFORMATION
  Report Type: Spontaneous
  Country: US (occurrence: US)
  Receive Date: 20201104
  Receipt Date: 20201104
  Transmission Date: 20210114
  Serious: Yes (Life-Threatening, Hospitalization)
  Sender: FDA-Public Use
  Company Number: None

PATIENT
  Age: 63 Year
  Sex: Male
  Weight: 72.12 kg

DRUGS (2)
  1. INSULIN (INSULIN, GLARGINE, HUMAN 300 UNT/ML INJ, SOLOSTAR, 3ML) [Suspect]
     Active Substance: INSULIN GLARGINE
     Indication: DIABETES MELLITUS
     Dosage: ?          OTHER DOSE:45 UNITS;?
     Route: 058
     Dates: start: 20090616
  2. NOVOLOG [Suspect]
     Active Substance: INSULIN ASPART
     Indication: DIABETES MELLITUS
     Dosage: ?          OTHER DOSE:7 UNITS;?
     Route: 058
     Dates: start: 20121026

REACTIONS (8)
  - Diabetic ketoacidosis [None]
  - Nausea [None]
  - Fatigue [None]
  - Asthenia [None]
  - Polydipsia [None]
  - Vomiting [None]
  - Polyuria [None]
  - Therapy cessation [None]

NARRATIVE: CASE EVENT DATE: 20200715
